FAERS Safety Report 8886804 (Version 1)
Quarter: 2012Q4

REPORT INFORMATION
  Report Type: 
  Country: US (occurrence: US)
  Receive Date: 20121105
  Receipt Date: 20121105
  Transmission Date: 20130627
  Serious: No
  Sender: FDA-Public Use
  Company Number: US-PFIZER INC-2012264264

PATIENT
  Age: 49 Year
  Sex: Female
  Weight: 68 kg

DRUGS (4)
  1. LO/OVRAL-28 [Suspect]
     Indication: ENDOMETRIOSIS
     Dosage: UNK
  2. CRYSELLE [Suspect]
     Indication: ENDOMETRIOSIS
     Dosage: UNK
     Dates: start: 201206, end: 201207
  3. ZOCOR [Concomitant]
     Indication: HIGH CHOLESTEROL
     Dosage: 10 mg, Daily
  4. BENICAR [Concomitant]
     Indication: BLOOD PRESSURE HIGH
     Dosage: 15 mg, 2x/day

REACTIONS (4)
  - Drug administration error [Unknown]
  - Drug ineffective [Unknown]
  - Malaise [Recovered/Resolved]
  - Sluggishness [Recovered/Resolved]
